FAERS Safety Report 19755669 (Version 23)
Quarter: 2025Q3

REPORT INFORMATION
  Report Type: Report from Study
  Country: US (occurrence: US)
  Receive Date: 20210827
  Receipt Date: 20250827
  Transmission Date: 20251021
  Serious: Yes (Hospitalization, Other)
  Sender: TAKEDA
  Company Number: US-TAKEDA-US202010379

PATIENT
  Age: 61 Year
  Sex: Female
  Weight: 53.002 kg

DRUGS (35)
  1. HUMAN IMMUNOGLOBULIN G [Suspect]
     Active Substance: HUMAN IMMUNOGLOBULIN G
     Indication: IgG deficiency
     Dosage: 55 GRAM, QD
  2. HUMAN IMMUNOGLOBULIN G [Suspect]
     Active Substance: HUMAN IMMUNOGLOBULIN G
     Indication: Primary immunodeficiency syndrome
     Dosage: 22 GRAM, 5/WEEK
  3. HUMAN IMMUNOGLOBULIN G [Suspect]
     Active Substance: HUMAN IMMUNOGLOBULIN G
     Indication: Dermatomyositis
  4. HUMAN IMMUNOGLOBULIN G [Suspect]
     Active Substance: HUMAN IMMUNOGLOBULIN G
     Indication: Antisynthetase syndrome
     Dosage: 55 GRAM, Q2WEEKS
  5. HUMAN IMMUNOGLOBULIN G [Suspect]
     Active Substance: HUMAN IMMUNOGLOBULIN G
  6. HUMAN IMMUNOGLOBULIN G [Suspect]
     Active Substance: HUMAN IMMUNOGLOBULIN G
  7. HUMAN IMMUNOGLOBULIN G [Suspect]
     Active Substance: HUMAN IMMUNOGLOBULIN G
  8. VERAPAMIL [Suspect]
     Active Substance: VERAPAMIL HYDROCHLORIDE
     Indication: Product used for unknown indication
  9. ACETAMINOPHEN [Concomitant]
     Active Substance: ACETAMINOPHEN
  10. VITAMIN C [Concomitant]
     Active Substance: ASCORBIC ACID
  11. JUBLIA [Concomitant]
     Active Substance: EFINACONAZOLE
  12. EPINEPHRINE [Concomitant]
     Active Substance: EPINEPHRINE
  13. CALCIUM [Concomitant]
     Active Substance: CALCIUM
  14. LIDOCAINE [Concomitant]
     Active Substance: LIDOCAINE
  15. METHOCARBAMOL [Concomitant]
     Active Substance: METHOCARBAMOL
  16. CLINDAMYCIN HYDROCHLORIDE [Concomitant]
     Active Substance: CLINDAMYCIN HYDROCHLORIDE
  17. BREO ELLIPTA [Concomitant]
     Active Substance: FLUTICASONE FUROATE\VILANTEROL TRIFENATATE
  18. FISH OIL\OMEGA-3 FATTY ACIDS [Concomitant]
     Active Substance: FISH OIL\OMEGA-3 FATTY ACIDS
  19. HEPARIN [Concomitant]
     Active Substance: HEPARIN SODIUM
  20. SODIUM CHLORIDE [Concomitant]
     Active Substance: SODIUM CHLORIDE
  21. MUPIROCIN [Concomitant]
     Active Substance: MUPIROCIN
  22. PANTOPRAZOLE SODIUM [Concomitant]
     Active Substance: PANTOPRAZOLE SODIUM
  23. INCRUSE ELLIPTA [Concomitant]
     Active Substance: UMECLIDINIUM BROMIDE
  24. HYDROXYCHLOROQUINE SULFATE [Concomitant]
     Active Substance: HYDROXYCHLOROQUINE SULFATE
  25. MESALAMINE [Concomitant]
     Active Substance: MESALAMINE
  26. LIDOCAINE\PRILOCAINE [Concomitant]
     Active Substance: LIDOCAINE\PRILOCAINE
  27. BIOTIN [Concomitant]
     Active Substance: BIOTIN
  28. DIPHENHYDRAMINE HYDROCHLORIDE [Concomitant]
     Active Substance: DIPHENHYDRAMINE HYDROCHLORIDE
  29. PROAIR DIGIHALER [Concomitant]
     Active Substance: ALBUTEROL SULFATE
  30. RECLAST [Concomitant]
     Active Substance: ZOLEDRONIC ACID
  31. SODIUM CHLORIDE [Concomitant]
     Active Substance: SODIUM CHLORIDE
  32. WATER FOR INJECTION [Concomitant]
     Active Substance: WATER
  33. CATHFLO ACTIVASE [Concomitant]
     Active Substance: ALTEPLASE
  34. TRIAMCINOLONE ACETONIDE [Concomitant]
     Active Substance: TRIAMCINOLONE ACETONIDE
  35. Mylanta tonight [Concomitant]

REACTIONS (38)
  - Neuropathy peripheral [Recovering/Resolving]
  - Crohn^s disease [Unknown]
  - Stiff person syndrome [Unknown]
  - Nasopharyngitis [Unknown]
  - Myositis [Unknown]
  - COVID-19 [Unknown]
  - Colitis [Unknown]
  - Sjogren^s syndrome [Unknown]
  - Anti-GAD antibody positive [Unknown]
  - White blood cell count decreased [Unknown]
  - Dermatomyositis [Unknown]
  - Weight decreased [Unknown]
  - Hepatitis B antibody positive [Unknown]
  - Antibody test abnormal [Unknown]
  - Blood pressure decreased [Unknown]
  - Bronchitis viral [Unknown]
  - Ulcer haemorrhage [Unknown]
  - Ulcer [Unknown]
  - Device occlusion [Recovering/Resolving]
  - Off label use [Unknown]
  - Paranasal sinus discomfort [Unknown]
  - Infusion site hypoaesthesia [Unknown]
  - Gastrointestinal infection [Recovered/Resolved]
  - Pleural thickening [Unknown]
  - Pulmonary granuloma [Unknown]
  - Hepatitis B surface antibody positive [Unknown]
  - Bradycardia [Unknown]
  - Pain [Unknown]
  - Muscle spasms [Unknown]
  - Pain in extremity [Recovered/Resolved]
  - Tachycardia [Unknown]
  - Migraine [Unknown]
  - Back pain [Recovered/Resolved]
  - Arthralgia [Recovering/Resolving]
  - Headache [Unknown]
  - Oral candidiasis [Unknown]
  - Muscular dystrophy [Unknown]
  - Laryngitis [Unknown]

NARRATIVE: CASE EVENT DATE: 20240101
